FAERS Safety Report 5303976-3 (Version None)
Quarter: 2007Q1

REPORT INFORMATION
  Report Type: 
  Country: None (occurrence: None)
  Receive Date: 20070201
  Receipt Date: 20061122
  Transmission Date: 20070707
  Serious: No
  Sender: FDA-Public Use
  Company Number: 2006PV025806

PATIENT
  Age: 50 Year
  Sex: Male

DRUGS (1)
  1. BYETTA [Suspect]
     Indication: DRUG USE FOR UNKNOWN INDICATION
     Dosage: 10 MCG SC
     Route: 058

REACTIONS (3)
  - BLOOD GLUCOSE INCREASED [None]
  - INJECTION SITE PAIN [None]
  - INJECTION SITE VESICLES [None]
